FAERS Safety Report 25463999 (Version 1)
Quarter: 2025Q2

REPORT INFORMATION
  Report Type: Spontaneous
  Country: GB (occurrence: GB)
  Receive Date: 20250621
  Receipt Date: 20250621
  Transmission Date: 20250717
  Serious: Yes (Other)
  Sender: AUROBINDO
  Company Number: GB-MHRA-EMIS-2035-99ec2603-22e7-456d-86ba-cd345b968db5

PATIENT
  Age: 73 Year
  Sex: Female
  Weight: 65 kg

DRUGS (3)
  1. RAMIPRIL [Suspect]
     Active Substance: RAMIPRIL
     Indication: Product used for unknown indication
     Dosage: 1 DOSAGE FORM, ONCE A DAY
     Route: 065
     Dates: start: 20250401
  2. CYCLIZINE [Concomitant]
     Active Substance: CYCLIZINE
     Indication: Product used for unknown indication
     Route: 065
     Dates: start: 20250123, end: 20250307
  3. INDAPAMIDE [Concomitant]
     Active Substance: INDAPAMIDE
     Indication: Product used for unknown indication
     Dosage: 1 DOSAGE FORM, ONCE A DAY
     Route: 065

REACTIONS (3)
  - Swelling face [Recovered/Resolved]
  - Pruritus [Recovered/Resolved]
  - Reaction to excipient [Recovered/Resolved]

NARRATIVE: CASE EVENT DATE: 20250401
